FAERS Safety Report 11197289 (Version 1)
Quarter: 2015Q2

REPORT INFORMATION
  Report Type: Spontaneous
  Country: US (occurrence: US)
  Receive Date: 20150617
  Receipt Date: 20150617
  Transmission Date: 20150821
  Serious: No
  Sender: FDA-Public Use
  Company Number: US-PFIZER INC-2015199188

PATIENT
  Age: 50 Year
  Sex: Female

DRUGS (2)
  1. SUTENT [Suspect]
     Active Substance: SUNITINIB MALATE
     Dosage: 50 MG, UNK
     Dates: start: 20150317, end: 2015
  2. SUTENT [Suspect]
     Active Substance: SUNITINIB MALATE
     Dosage: UNK
     Dates: start: 2015, end: 20150507

REACTIONS (6)
  - Diarrhoea [Recovering/Resolving]
  - Weight decreased [Unknown]
  - Dehydration [Unknown]
  - Hypertension [Recovering/Resolving]
  - Blister [Unknown]
  - Hair colour changes [Unknown]

NARRATIVE: CASE EVENT DATE: 2015
